FAERS Safety Report 8111161-5 (Version None)
Quarter: 2012Q1

REPORT INFORMATION
  Report Type: 
  Country: None (occurrence: None)
  Receive Date: 20120203
  Receipt Date: 20110523
  Transmission Date: 20120608
  Serious: No
  Sender: FDA-Public Use
  Company Number: US-GLAXOSMITHKLINE-A0928573A

PATIENT
  Sex: Male

DRUGS (10)
  1. MELATONIN [Concomitant]
  2. SLEEPING PILL [Concomitant]
  3. GRANISETRON [Concomitant]
  4. MULTI-VITAMINS [Concomitant]
  5. ASHWAGANDHA [Concomitant]
  6. CALCITRIOL [Concomitant]
  7. TEMODAR [Concomitant]
  8. LAMOTRIGINE [Suspect]
     Indication: CONVULSION
     Dosage: 150MG TWICE PER DAY
     Route: 048
     Dates: start: 20090101, end: 20090101
  9. SUPPLEMENT [Concomitant]
  10. FISH OIL [Concomitant]

REACTIONS (2)
  - DISTURBANCE IN ATTENTION [None]
  - SPEECH DISORDER [None]
